FAERS Safety Report 15476526 (Version 2)
Quarter: 2018Q4

REPORT INFORMATION
  Report Type: Spontaneous
  Country: PT (occurrence: PT)
  Receive Date: 20181009
  Receipt Date: 20181023
  Transmission Date: 20190205
  Serious: Yes (Other)
  Sender: FDA-Public Use
  Company Number: PT-TEVA-2018-PT-962149

PATIENT
  Age: 25 Year
  Sex: Female

DRUGS (4)
  1. ATAZANAVIR. [Suspect]
     Active Substance: ATAZANAVIR SULFATE
     Indication: HIV TEST POSITIVE
     Dosage: 300 MILLIGRAM DAILY;
     Route: 048
     Dates: start: 20050301
  2. RITONAVIR. [Concomitant]
     Active Substance: RITONAVIR
     Indication: HIV TEST POSITIVE
     Dosage: 100 MILLIGRAM DAILY;
     Route: 048
     Dates: start: 20050301
  3. TENOFOVIR [Concomitant]
     Active Substance: TENOFOVIR
     Indication: HIV TEST POSITIVE
     Dosage: 1 DOSAGE FORMS DAILY;
     Route: 048
     Dates: start: 20050301
  4. LAMIVUDINE. [Concomitant]
     Active Substance: LAMIVUDINE
     Indication: HIV TEST POSITIVE
     Dosage: 300 MILLIGRAM DAILY;
     Route: 048
     Dates: start: 20050301

REACTIONS (3)
  - Aspartate aminotransferase increased [Recovering/Resolving]
  - Blood bilirubin [Unknown]
  - Alanine aminotransferase increased [Recovering/Resolving]

NARRATIVE: CASE EVENT DATE: 20050517
